FAERS Safety Report 6743108-8 (Version None)
Quarter: 2010Q2

REPORT INFORMATION
  Report Type: 
  Country: None (occurrence: None)
  Receive Date: 20100525
  Receipt Date: 20100510
  Transmission Date: 20101027
  Serious: Yes (Other)
  Sender: FDA-Public Use
  Company Number: 2010000338

PATIENT
  Age: 66 Year
  Sex: Female
  Weight: 40.3 kg

DRUGS (9)
  1. TARCEVA [Suspect]
     Indication: NON-SMALL CELL LUNG CANCER
     Dosage: (150 MG, QD), ORAL
     Route: 048
     Dates: start: 20100107
  2. GABAPENTIN [Suspect]
     Indication: DRUG USE FOR UNKNOWN INDICATION
     Dosage: (200 MG, QD), ORAL
     Route: 048
     Dates: start: 20100108, end: 20100109
  3. MUCOSTA (REBAMIPIDE) [Concomitant]
  4. RABEPRAZOLE SODIUM [Concomitant]
  5. PRAVASTATIN [Concomitant]
  6. PREDNISOLONE [Concomitant]
  7. GASMOTIN (MOSAPRIDE CITRATE) [Concomitant]
  8. LENDORM [Concomitant]
  9. MYONAL (EPERISONE HYDROCHLORIDE) [Concomitant]

REACTIONS (2)
  - INTERSTITIAL LUNG DISEASE [None]
  - LEUKOPENIA [None]
